FAERS Safety Report 5471190-7 (Version None)
Quarter: 2007Q3

REPORT INFORMATION
  Report Type: 
  Country: None (occurrence: None)
  Receive Date: 20070928
  Receipt Date: 20070618
  Transmission Date: 20080115
  Serious: No
  Sender: FDA-Public Use
  Company Number: A0657221A

PATIENT
  Age: 85 Year
  Sex: Female

DRUGS (1)
  1. FLOVENT [Suspect]
     Dosage: 110MCG FOUR TIMES PER DAY
     Route: 055
     Dates: start: 20070523

REACTIONS (5)
  - DIARRHOEA [None]
  - HEADACHE [None]
  - NAUSEA [None]
  - NERVOUSNESS [None]
  - PHARMACEUTICAL PRODUCT COMPLAINT [None]
